FAERS Safety Report 8373107-4 (Version None)
Quarter: 2012Q2

REPORT INFORMATION
  Report Type: 
  Country: None (occurrence: None)
  Receive Date: 20120521
  Receipt Date: 20120509
  Transmission Date: 20120825
  Serious: No
  Sender: FDA-Public Use
  Company Number: US-B.I. PHARMACEUTICALS,INC./RIDGEFIELD-2011-BP-11864BP

PATIENT
  Sex: Female

DRUGS (5)
  1. LEVOTHYROXINE SODIUM [Concomitant]
  2. LISINOPRIL [Concomitant]
  3. NEXIUM [Concomitant]
  4. DIGOXIN [Concomitant]
  5. PRADAXA [Suspect]

REACTIONS (2)
  - RESPIRATORY TRACT OEDEMA [None]
  - ANGIOEDEMA [None]
